FAERS Safety Report 9289997 (Version 2)
Quarter: 2013Q2

REPORT INFORMATION
  Report Type: Spontaneous
  Country: US (occurrence: US)
  Receive Date: 20130515
  Receipt Date: 20130515
  Transmission Date: 20140414
  Serious: No
  Sender: FDA-Public Use
  Company Number: US-MYLANLABS-2012S1016906

PATIENT
  Age: 45 Year
  Sex: Female
  Weight: 72.58 kg

DRUGS (2)
  1. RIMSO-50 (DIMETHYL SULFOXIDE IRRIGATION USP) [Suspect]
     Indication: CYSTITIS INTERSTITIAL
     Route: 043
     Dates: start: 201206
  2. ACTONEL [Concomitant]

REACTIONS (2)
  - Vision blurred [Not Recovered/Not Resolved]
  - Abnormal sensation in eye [Not Recovered/Not Resolved]
